FAERS Safety Report 23114856 (Version 1)
Quarter: 2023Q4

REPORT INFORMATION
  Report Type: Spontaneous
  Country: IT (occurrence: IT)
  Receive Date: 20231027
  Receipt Date: 20231027
  Transmission Date: 20240110
  Serious: Yes (Other)
  Sender: FDA-Public Use
  Company Number: None

PATIENT
  Age: 70 Year
  Sex: Male
  Weight: 73 kg

DRUGS (3)
  1. DARZALEX [Suspect]
     Active Substance: DARATUMUMAB
     Indication: Plasma cell myeloma
     Dosage: 1800 MG/MONTH
     Route: 058
     Dates: start: 20190911
  2. DEXAMETHASONE [Suspect]
     Active Substance: DEXAMETHASONE
     Indication: Plasma cell myeloma
     Dosage: 20 MG/SETTIMANA
     Route: 065
     Dates: start: 20190911
  3. LENALIDOMIDE [Suspect]
     Active Substance: LENALIDOMIDE
     Indication: Plasma cell myeloma
     Dosage: 1 CPS DA 10 MG/DIE PE 21 GG/MESE
     Route: 048
     Dates: start: 20190911, end: 20230518

REACTIONS (1)
  - Choroid melanoma [Recovered/Resolved with Sequelae]

NARRATIVE: CASE EVENT DATE: 20230523
